FAERS Safety Report 5761084-1 (Version None)
Quarter: 2008Q2

REPORT INFORMATION
  Report Type: 
  Country: None (occurrence: None)
  Receive Date: 20080606
  Receipt Date: 20080528
  Transmission Date: 20081010
  Serious: Yes (Hospitalization, Other)
  Sender: FDA-Public Use
  Company Number: BR-JNJFOC-20080102858

PATIENT
  Sex: Female
  Weight: 75 kg

DRUGS (4)
  1. ACETAMINOPHEN W/ CODEINE [Suspect]
     Route: 048
  2. ACETAMINOPHEN W/ CODEINE [Suspect]
     Indication: PAIN
     Dosage: 3 TABLETS PER DAY/1 TABLET EVERY   8 HOURS
     Route: 048
  3. ORAL CONTRACEPTIVE [Interacting]
     Indication: DRUG USE FOR UNKNOWN INDICATION
     Route: 065
  4. FLUCONAZOLE [Interacting]
     Indication: TINEA VERSICOLOUR
     Dosage: TOTAL OF 4 TABLETS
     Route: 048

REACTIONS (12)
  - ARRHYTHMIA [None]
  - CHEST DISCOMFORT [None]
  - COUGH [None]
  - DRUG INTERACTION [None]
  - DYSPHONIA [None]
  - DYSPNOEA [None]
  - EYE IRRITATION [None]
  - EYE PAIN [None]
  - PALPITATIONS [None]
  - PHARYNGOLARYNGEAL PAIN [None]
  - URINARY TRACT INFECTION [None]
  - VISION BLURRED [None]
